FAERS Safety Report 18199992 (Version 2)
Quarter: 2020Q3

REPORT INFORMATION
  Report Type: Spontaneous
  Country: US (occurrence: US)
  Receive Date: 20200826
  Receipt Date: 20200916
  Transmission Date: 20201103
  Serious: Yes (Hospitalization, Other)
  Sender: FDA-Public Use
  Company Number: US-009507513-2008USA011780

PATIENT
  Age: 51 Year
  Sex: Female
  Weight: 50.7 kg

DRUGS (15)
  1. KEYTRUDA [Suspect]
     Active Substance: PEMBROLIZUMAB
     Dosage: 200 MILLIGRAM, QD CYCLE 3
     Route: 042
     Dates: start: 20200730, end: 20200730
  2. METFORMIN [Concomitant]
     Active Substance: METFORMIN HYDROCHLORIDE
     Indication: DIABETES MELLITUS
     Dosage: 850 MILLIGRAM
     Route: 048
     Dates: start: 20180419
  3. FERROUS SULFATE. [Concomitant]
     Active Substance: FERROUS SULFATE
  4. PYRIDOXINE [Concomitant]
     Active Substance: PYRIDOXINE
  5. REGORAFENIB. [Suspect]
     Active Substance: REGORAFENIB
     Dosage: 80 MILLIGRAM, QD
     Route: 048
     Dates: start: 20200730, end: 20200812
  6. CARVEDILOL. [Concomitant]
     Active Substance: CARVEDILOL
     Indication: HYPERTENSION
     Dosage: 3.125 MG
     Route: 048
     Dates: start: 20150611
  7. KEYTRUDA [Suspect]
     Active Substance: PEMBROLIZUMAB
     Dosage: 200 MILLIGRAM, QD
     Route: 042
     Dates: start: 20200618, end: 20200618
  8. REGORAFENIB. [Suspect]
     Active Substance: REGORAFENIB
     Dosage: 80 MILLIGRAM, QD
     Route: 048
     Dates: start: 20200618
  9. MAGNESIUM OXIDE. [Concomitant]
     Active Substance: MAGNESIUM OXIDE
  10. MILK THISTLE [Concomitant]
     Active Substance: DIETARY SUPPLEMENT\HERBALS\MILK THISTLE
  11. REGORAFENIB. [Suspect]
     Active Substance: REGORAFENIB
     Indication: RECTOSIGMOID CANCER METASTATIC
     Dosage: 80 MILLIGRAM, QD
     Route: 048
     Dates: start: 20200820, end: 20200821
  12. CHOLECALCIFEROL [Concomitant]
     Active Substance: CHOLECALCIFEROL
  13. POTASSIUM CHLORIDE. [Concomitant]
     Active Substance: POTASSIUM CHLORIDE
  14. KEYTRUDA [Suspect]
     Active Substance: PEMBROLIZUMAB
     Indication: RECTOSIGMOID CANCER METASTATIC
     Dosage: 200 MILLIGRAM, QD CYCLE 4
     Route: 042
     Dates: start: 20200820, end: 20200821
  15. PROBIOTICS (UNSPECIFIED) [Concomitant]
     Active Substance: PROBIOTICS NOS

REACTIONS (3)
  - Product use in unapproved indication [Unknown]
  - Product use issue [Unknown]
  - Malignant neoplasm progression [Unknown]

NARRATIVE: CASE EVENT DATE: 20200730
